FAERS Safety Report 4697403-7 (Version None)
Quarter: 2005Q2

REPORT INFORMATION
  Report Type: 
  Country: None (occurrence: None)
  Receive Date: 20050621
  Receipt Date: 20050603
  Transmission Date: 20051028
  Serious: Yes (Other)
  Sender: FDA-Public Use
  Company Number: USA050699670

PATIENT
  Age: 55 Year
  Sex: Female

DRUGS (3)
  1. HUMULIN 70/30 [Suspect]
     Indication: DIABETES MELLITUS
     Dates: start: 19900101, end: 19940101
  2. HUMULIN N [Suspect]
     Indication: DIABETES MELLITUS
     Dosage: 62 U DAY
     Dates: start: 19940101
  3. HUMULIN R [Suspect]
     Indication: DIABETES MELLITUS
     Dosage: 12 U IN THE MORNING
     Dates: start: 19940101

REACTIONS (8)
  - BLINDNESS [None]
  - BLINDNESS UNILATERAL [None]
  - CATARACT [None]
  - COUGH [None]
  - MACULAR SCAR [None]
  - MALAISE [None]
  - NASOPHARYNGITIS [None]
  - RETINAL DISORDER [None]
